FAERS Safety Report 5419268-8 (Version None)
Quarter: 2007Q3

REPORT INFORMATION
  Report Type: 
  Country: None (occurrence: None)
  Receive Date: 20070816
  Receipt Date: 20070816
  Transmission Date: 20080115
  Serious: Yes (Hospitalization)
  Sender: FDA-Public Use
  Company Number: None

PATIENT
  Age: 47 Year
  Sex: Male
  Weight: 70 kg

DRUGS (5)
  1. DEPAKOTE ER [Suspect]
     Indication: MOOD ALTERED
     Dosage: 1500MG PO HS
     Route: 048
     Dates: start: 20070613, end: 20070706
  2. CLOZAPINE [Concomitant]
  3. BENZTROPINE [Concomitant]
  4. LORAZEPAM [Concomitant]
  5. RISPERIDONE [Concomitant]

REACTIONS (6)
  - ABDOMINAL DISTENSION [None]
  - ANAEMIA [None]
  - HEPATOTOXICITY [None]
  - LIVER FUNCTION TEST ABNORMAL [None]
  - VOMITING [None]
  - WEIGHT DECREASED [None]
